FAERS Safety Report 9268043 (Version 1)
Quarter: 2013Q2

REPORT INFORMATION
  Report Type: Spontaneous
  Country: US (occurrence: US)
  Receive Date: 20130502
  Receipt Date: 20130502
  Transmission Date: 20140414
  Serious: Yes (Hospitalization)
  Sender: FDA-Public Use
  Company Number: US-ALEXION-A201201477

PATIENT
  Age: 64 Year
  Sex: Male
  Weight: 95.9 kg

DRUGS (8)
  1. SOLIRIS 300MG [Suspect]
     Indication: PAROXYSMAL NOCTURNAL HAEMOGLOBINURIA
     Dosage: 900 MG, Q2W
     Route: 042
     Dates: start: 201201
  2. POTASSIUM [Concomitant]
     Indication: HYPOKALAEMIA
  3. XANAX [Concomitant]
     Indication: PANIC ATTACK
  4. LASIX [Concomitant]
     Indication: OEDEMA PERIPHERAL
  5. PREDNISONE [Concomitant]
     Dosage: 15 MG, QD
  6. WARFARIN [Concomitant]
  7. VIAGRA [Concomitant]
     Indication: ERECTILE DYSFUNCTION
  8. VIAGRA [Concomitant]
     Indication: ERECTILE DYSFUNCTION

REACTIONS (1)
  - Implantable defibrillator insertion [Recovered/Resolved]
